FAERS Safety Report 7640778-7 (Version None)
Quarter: 2011Q3

REPORT INFORMATION
  Report Type: 
  Country: None (occurrence: None)
  Receive Date: 20110728
  Receipt Date: 20110715
  Transmission Date: 20111222
  Serious: Yes (Other)
  Sender: FDA-Public Use
  Company Number: US-ELI_LILLY_AND_COMPANY-US201107005348

PATIENT
  Age: 56 Year
  Sex: Male

DRUGS (2)
  1. CYMBALTA [Suspect]
     Dosage: 60 MG, UNKNOWN
  2. CHEMOTHERAPEUTICS [Concomitant]
     Indication: PROSTATE CANCER
     Dosage: UNK

REACTIONS (3)
  - PROSTATE CANCER [None]
  - DYSGEUSIA [None]
  - DRUG INTERACTION [None]
